FAERS Safety Report 8789371 (Version 1)
Quarter: 2012Q4

REPORT INFORMATION
  Report Type: 
  Country: US (occurrence: None)
  Receive Date: 20120905
  Receipt Date: 20120905
  Transmission Date: 20130627
  Serious: Yes (Hospitalization, Other)
  Sender: FDA-Public Use
  Company Number: 2012MA010319

PATIENT
  Age: 65 Year
  Sex: Male

DRUGS (5)
  1. OXYCODONE HCL [Suspect]
     Indication: BACK PAIN
     Route: 048
     Dates: start: 2002
  2. VALIUM [Suspect]
     Indication: INSOMNIA
     Route: 048
  3. XANAX [Concomitant]
  4. OXYCONTIN [Suspect]
     Route: 048
  5. INTERFERON [Concomitant]

REACTIONS (9)
  - Amnesia [None]
  - Judgement impaired [None]
  - Psychotic disorder [None]
  - Somnambulism [None]
  - Aggression [None]
  - Drug interaction [None]
  - Road traffic accident [None]
  - Depression [None]
  - Abnormal behaviour [None]
